FAERS Safety Report 4807173-7 (Version None)
Quarter: 2005Q4

REPORT INFORMATION
  Report Type: 
  Country: None (occurrence: None)
  Receive Date: 20051024
  Receipt Date: 20051011
  Transmission Date: 20060501
  Serious: Yes (Death)
  Sender: FDA-Public Use
  Company Number: US-AMGEN-US153940

PATIENT
  Sex: Female

DRUGS (5)
  1. PROCRIT [Suspect]
     Indication: RENAL FAILURE CHRONIC
     Route: 058
     Dates: start: 20010101
  2. CARDIZEM [Concomitant]
  3. LASIX [Concomitant]
  4. IRON [Concomitant]
  5. PREDNISONE TAB [Concomitant]

REACTIONS (2)
  - ABDOMINAL MASS [None]
  - DEATH [None]
